FAERS Safety Report 7574883-0 (Version None)
Quarter: 2011Q2

REPORT INFORMATION
  Report Type: 
  Country: None (occurrence: None)
  Receive Date: 20110627
  Receipt Date: 20110531
  Transmission Date: 20111010
  Serious: Yes (Hospitalization)
  Sender: FDA-Public Use
  Company Number: US-BAYER-201029755NA

PATIENT
  Age: 17 Year
  Sex: Female
  Weight: 69.841 kg

DRUGS (2)
  1. YAZ [Suspect]
     Indication: CONTRACEPTION
  2. YAZ [Suspect]
     Indication: ACNE
     Route: 048
     Dates: start: 20071101, end: 20091001

REACTIONS (5)
  - DYSPNOEA [None]
  - SUPRAVENTRICULAR TACHYCARDIA [None]
  - CHEST PAIN [None]
  - DIZZINESS [None]
  - CHEST DISCOMFORT [None]
